FAERS Safety Report 7391764-6 (Version None)
Quarter: 2011Q2

REPORT INFORMATION
  Report Type: 
  Country: None (occurrence: None)
  Receive Date: 20110404
  Receipt Date: 20110329
  Transmission Date: 20111010
  Serious: Yes (Death, Hospitalization)
  Sender: FDA-Public Use
  Company Number: ES-ROCHE-756212

PATIENT
  Sex: Female

DRUGS (1)
  1. ROACTEMRA [Suspect]
     Dosage: DOSE: 6 CYCLES
     Route: 065

REACTIONS (3)
  - LUNG INFECTION [None]
  - RESPIRATORY DISTRESS [None]
  - RESPIRATORY TRACT INFECTION [None]
